FAERS Safety Report 12662089 (Version 5)
Quarter: 2017Q3

REPORT INFORMATION
  Report Type: Spontaneous
  Country: US (occurrence: US)
  Receive Date: 20160817
  Receipt Date: 20170915
  Transmission Date: 20171127
  Serious: No
  Sender: FDA-Public Use
  Company Number: US-LUNDBECK-DKLU2016680

PATIENT
  Sex: Female

DRUGS (4)
  1. NORTHERA [Suspect]
     Active Substance: DROXIDOPA
     Route: 048
  2. NORTHERA [Suspect]
     Active Substance: DROXIDOPA
     Indication: CAROTID SINUS SYNDROME
     Route: 065
  3. NORTHERA [Suspect]
     Active Substance: DROXIDOPA
     Indication: SYNCOPE
     Route: 065
     Dates: start: 201409
  4. NORTHERA [Suspect]
     Active Substance: DROXIDOPA
     Dosage: 48 HR TITRATION SCHEDULE UP TO 500MG DOSE
     Route: 065

REACTIONS (3)
  - Syncope [Unknown]
  - Blood pressure fluctuation [Unknown]
  - Drug ineffective [Unknown]
